FAERS Safety Report 13735821 (Version 7)
Quarter: 2017Q4

REPORT INFORMATION
  Report Type: Report from Study
  Country: BR (occurrence: BR)
  Receive Date: 20170710
  Receipt Date: 20171109
  Transmission Date: 20180320
  Serious: Yes (Other)
  Sender: FDA-Public Use
  Company Number: PHHY2017BR090770

PATIENT
  Sex: Female
  Weight: 74 kg

DRUGS (14)
  1. ALLEGRA [Concomitant]
     Active Substance: FEXOFENADINE HYDROCHLORIDE
     Indication: URTICARIA CHRONIC
     Dosage: 1 DF, QD (START OF USE DATE: ONLY WHEN IN ITCHING CRISES)
     Route: 048
  2. DIOVAN [Suspect]
     Active Substance: VALSARTAN
     Indication: HYPERTENSION
     Dosage: 1 DF, QD (SINCE SHE WAS 49 YEARS OLD OR MORE)
     Route: 048
  3. HIXIZINE [Concomitant]
     Active Substance: HYDROXYZINE HYDROCHLORIDE
     Indication: URTICARIA CHRONIC
     Dosage: 1 DF, QD (START OF USE DATE: ONLY WHEN IN ITCHING CRISES)
     Route: 048
  4. PREDSIM [Concomitant]
     Active Substance: PREDNISOLONE
     Indication: URTICARIA CHRONIC
     Dosage: 2 DF, QD (START OF USE DATE: ONLY WHEN IN ITCHING CRISES)
     Route: 048
  5. XOLAIR [Suspect]
     Active Substance: OMALIZUMAB
     Dosage: UNK
     Route: 058
     Dates: start: 20170618
  6. XOLAIR [Suspect]
     Active Substance: OMALIZUMAB
     Dosage: UNK
     Route: 058
     Dates: start: 20170803
  7. CORTISONE [Concomitant]
     Active Substance: CORTISONE\HYDROCORTISONE
     Indication: PRODUCT USED FOR UNKNOWN INDICATION
     Route: 065
  8. ALEKTOS [Concomitant]
     Active Substance: BILASTINE
     Indication: URTICARIA CHRONIC
     Dosage: 2 DF, QD (START OF USE DATE: ONLY WHEN IN ITCHING CRISES)
     Route: 048
  9. XOLAIR [Suspect]
     Active Substance: OMALIZUMAB
     Indication: URTICARIA CHRONIC
     Dosage: 2 DF (150 MG), EVERY 4 WEEKS
     Route: 058
     Dates: start: 201705
  10. XOLAIR [Suspect]
     Active Substance: OMALIZUMAB
     Dosage: UNK
     Route: 058
     Dates: start: 20170316
  11. XOLAIR [Suspect]
     Active Substance: OMALIZUMAB
     Dosage: UNK
     Route: 058
     Dates: start: 20170420
  12. XOLAIR [Suspect]
     Active Substance: OMALIZUMAB
     Dosage: 300 MG (2 INJECTIONS OF 150 MG), EVERY 4 WEEKS
     Route: 058
     Dates: start: 20170518
  13. XOLAIR [Suspect]
     Active Substance: OMALIZUMAB
     Dosage: UNK
     Route: 058
     Dates: start: 20171009
  14. INDAPEN [Concomitant]
     Active Substance: INDAPAMIDE
     Indication: HYPERTENSION
     Dosage: 1 DF, QD, SINCE 49 YEARS OLD
     Route: 048

REACTIONS (27)
  - Eye swelling [Recovered/Resolved]
  - Eye swelling [Unknown]
  - Mass [Not Recovered/Not Resolved]
  - Tongue discolouration [Unknown]
  - Insomnia [Unknown]
  - Dyspnoea [Unknown]
  - Body fat disorder [Unknown]
  - Thyroid disorder [Unknown]
  - Injection site warmth [Unknown]
  - Urticaria [Recovered/Resolved]
  - Blister [Unknown]
  - Swelling [Recovered/Resolved]
  - Weight decreased [Unknown]
  - Hypersensitivity [Unknown]
  - Pain [Unknown]
  - Oedema peripheral [Unknown]
  - Mydriasis [Unknown]
  - Mouth swelling [Unknown]
  - Swollen tongue [Unknown]
  - Swelling face [Unknown]
  - Pruritus [Recovered/Resolved]
  - Arthralgia [Unknown]
  - Arrhythmia [Unknown]
  - Swelling [Unknown]
  - Nasal oedema [Unknown]
  - Pruritus [Recovering/Resolving]
  - Reaction to food colouring [Unknown]
